FAERS Safety Report 17299189 (Version 1)
Quarter: 2020Q1

REPORT INFORMATION
  Report Type: Spontaneous
  Country: DE (occurrence: DE)
  Receive Date: 20200121
  Receipt Date: 20200121
  Transmission Date: 20200409
  Serious: Yes (Hospitalization)
  Sender: FDA-Public Use
  Company Number: DE-CELGENEUS-DEU-20190506903

PATIENT
  Age: 6 Year
  Sex: Male
  Weight: 20.8 kg

DRUGS (17)
  1. INFECTOFOS [Concomitant]
     Active Substance: FOSFOMYCIN SODIUM
     Route: 041
     Dates: start: 20190425
  2. PRIVIGEN [Concomitant]
     Active Substance: HUMAN IMMUNOGLOBULIN G
     Indication: IMMUNE SYSTEM DISORDER
     Dosage: 10 GRAM
     Route: 041
     Dates: start: 20190416
  3. AZACITIDINE. [Suspect]
     Active Substance: AZACITIDINE
     Indication: NEOPLASM MALIGNANT
     Dosage: 75 MILLIGRAM/SQ. METER
     Route: 041
     Dates: start: 20190411
  4. PARACETAMOL [Concomitant]
     Active Substance: ACETAMINOPHEN
     Indication: PYREXIA
     Dosage: 350 MILLIGRAM
     Route: 048
     Dates: start: 20190403
  5. AMBISOME [Concomitant]
     Active Substance: AMPHOTERICIN B
     Indication: PROPHYLAXIS
     Route: 041
     Dates: start: 20190409
  6. VENETOCLAX. [Concomitant]
     Active Substance: VENETOCLAX
     Indication: NEOPLASM MALIGNANT
     Dosage: 40 MILLIGRAM
     Route: 048
     Dates: start: 20190403, end: 20190403
  7. INFECTOFOS [Concomitant]
     Active Substance: FOSFOMYCIN SODIUM
     Indication: PYREXIA
     Route: 041
     Dates: start: 20190415, end: 20190417
  8. OMEP MUT [Concomitant]
     Active Substance: OMEPRAZOLE
     Indication: GASTRITIS PROPHYLAXIS
     Dosage: 10 MILLIGRAM
     Route: 048
     Dates: start: 20190317
  9. VENETOCLAX. [Concomitant]
     Active Substance: VENETOCLAX
     Dosage: 170 MILLIGRAM
     Route: 048
     Dates: start: 20190405
  10. ACIC [Concomitant]
     Active Substance: ACYCLOVIR
     Indication: ANTIVIRAL PROPHYLAXIS
     Dosage: 600 MILLIGRAM
     Route: 048
     Dates: start: 20130317
  11. UNACID [Concomitant]
     Dosage: 1000 MILLIGRAM
     Route: 048
     Dates: start: 20190512
  12. LAXANS [Concomitant]
     Indication: CONSTIPATION
     Dosage: 15 DROPS
     Route: 048
     Dates: start: 20190424
  13. CODRIM [Concomitant]
     Indication: INFECTION PROPHYLAXIS
     Dosage: 720 MILLIGRAM
     Route: 048
     Dates: start: 20190409
  14. PARACETAMOL [Concomitant]
     Active Substance: ACETAMINOPHEN
     Indication: PAIN
  15. KEVATRIL [Concomitant]
     Active Substance: GRANISETRON HYDROCHLORIDE
     Indication: NAUSEA
     Route: 041
     Dates: start: 20190411
  16. UNACID [Concomitant]
     Indication: INFECTION PROPHYLAXIS
     Dosage: 30 MILLILITER
     Route: 048
     Dates: start: 20190418, end: 20190506
  17. VENETOCLAX. [Concomitant]
     Active Substance: VENETOCLAX
     Dosage: 80 MILLIGRAM
     Route: 048
     Dates: start: 20190404, end: 20190404

REACTIONS (1)
  - Rhinovirus infection [Recovered/Resolved]

NARRATIVE: CASE EVENT DATE: 20190506
